FAERS Safety Report 6278589-X (Version None)
Quarter: 2009Q3

REPORT INFORMATION
  Report Type: 
  Country: None (occurrence: None)
  Receive Date: 20090722
  Receipt Date: 20090102
  Transmission Date: 20100115
  Serious: No
  Sender: FDA-Public Use
  Company Number: US-BAUSCH-2009BL000002

PATIENT
  Age: 60 Year
  Sex: Male

DRUGS (4)
  1. OPCON-A [Suspect]
     Indication: EYE PRURITUS
     Route: 047
     Dates: end: 20081101
  2. OPCON-A [Suspect]
     Indication: EYE IRRITATION
     Route: 047
     Dates: end: 20081101
  3. OPCON-A [Suspect]
     Route: 047
     Dates: end: 20081101
  4. OPCON-A [Suspect]
     Route: 047
     Dates: end: 20081101

REACTIONS (4)
  - EXPIRED DRUG ADMINISTERED [None]
  - EYE INFECTION BACTERIAL [None]
  - EYE INFLAMMATION [None]
  - EYE IRRITATION [None]
